FAERS Safety Report 4782230-2 (Version None)
Quarter: 2005Q3

REPORT INFORMATION
  Report Type: 
  Country: None (occurrence: None)
  Receive Date: 20050914
  Receipt Date: 20040809
  Transmission Date: 20060218
  Serious: Yes (Hospitalization)
  Sender: FDA-Public Use
  Company Number: 163-20785-04080190

PATIENT
  Age: 54 Year
  Sex: Female

DRUGS (1)
  1. THALOMID [Suspect]
     Indication: MULTIPLE MYELOMA
     Dosage: 200 MG, DAILY, ORAL
     Route: 048
     Dates: start: 20040421

REACTIONS (4)
  - ASTHENIA [None]
  - IMMUNE SYSTEM DISORDER [None]
  - MALAISE [None]
  - NEUTROPENIA [None]
